FAERS Safety Report 8503547-1 (Version None)
Quarter: 2012Q3

REPORT INFORMATION
  Report Type: 
  Country: None (occurrence: None)
  Receive Date: 20120711
  Receipt Date: 20120702
  Transmission Date: 20120928
  Serious: Yes (Hospitalization)
  Sender: FDA-Public Use
  Company Number: US-ASTRAZENECA-2012SE44655

PATIENT

DRUGS (2)
  1. DEXILANT [Suspect]
     Route: 065
  2. PRILOSEC [Suspect]
     Route: 048

REACTIONS (1)
  - DYSPEPSIA [None]
